FAERS Safety Report 8955360 (Version 1)
Quarter: 2012Q4

REPORT INFORMATION
  Report Type: 
  Country: US (occurrence: US)
  Receive Date: 20121207
  Receipt Date: 20121207
  Transmission Date: 20130627
  Serious: Yes (Death)
  Sender: FDA-Public Use
  Company Number: US-BRISTOL-MYERS SQUIBB COMPANY-17195546

PATIENT
  Age: 34 Year
  Sex: Female

DRUGS (8)
  1. MORPHINE SULFATE [Suspect]
  2. TRAZODONE HCL [Suspect]
  3. LEVETIRACETAM [Suspect]
  4. AMITRIPTYLINE [Suspect]
  5. DIPHENHYDRAMINE [Suspect]
  6. LAMOTRIGINE [Suspect]
  7. NORTRIPTYLINE [Suspect]
  8. PREGABALIN [Suspect]

REACTIONS (1)
  - Toxicity to various agents [Fatal]
